FAERS Safety Report 22139653 (Version 7)
Quarter: 2023Q4

REPORT INFORMATION
  Report Type: Spontaneous
  Country: CA (occurrence: CA)
  Receive Date: 20230327
  Receipt Date: 20231017
  Transmission Date: 20240109
  Serious: Yes (Other)
  Sender: FDA-Public Use
  Company Number: CA-CELLTRION INC.-2023CA006268

PATIENT

DRUGS (7)
  1. INFLECTRA [Suspect]
     Active Substance: INFLIXIMAB-DYYB
     Indication: Crohn^s disease
     Dosage: 10 MG/KG, FREQUENCY UNKNOWN
     Route: 042
     Dates: start: 2023
  2. INFLECTRA [Suspect]
     Active Substance: INFLIXIMAB-DYYB
     Dosage: 10 MG/KG, INDUCTION 0,2,6 THEN EVERY 8 WEEKS
     Route: 042
     Dates: start: 20230308, end: 20230612
  3. INFLECTRA [Suspect]
     Active Substance: INFLIXIMAB-DYYB
     Dosage: 510 MG (10 MG/KG), (2 WEEKS) FREQUENCY UNKNOWN
     Route: 042
     Dates: start: 20230330
  4. INFLECTRA [Suspect]
     Active Substance: INFLIXIMAB-DYYB
     Dosage: 10 MG/KG, INDUCTION W0,2,6 THEN Q8 WEEKS
     Route: 042
     Dates: start: 20230612
  5. INFLECTRA [Suspect]
     Active Substance: INFLIXIMAB-DYYB
     Dosage: 555 MG, 10 MG/KG, (7 WEEKS AND 4 DAYS) EVERY 4 WEEKS
     Route: 042
     Dates: start: 20230804, end: 20230804
  6. DIPHENHYDRAMINE [Concomitant]
     Active Substance: DIPHENHYDRAMINE
     Dosage: 50 MG
     Route: 042
  7. PREDNISONE [Concomitant]
     Active Substance: PREDNISONE
     Dosage: 30 MG
     Dates: start: 202303

REACTIONS (10)
  - Bacteraemia [Unknown]
  - Systemic lupus erythematosus [Not Recovered/Not Resolved]
  - Pruritus [Recovered/Resolved]
  - Dyspnoea [Recovered/Resolved]
  - Treatment failure [Unknown]
  - Drug level decreased [Unknown]
  - Sensitive skin [Unknown]
  - Arthritis [Unknown]
  - Arthralgia [Unknown]
  - Off label use [Unknown]

NARRATIVE: CASE EVENT DATE: 20230101
